FAERS Safety Report 21251189 (Version 1)
Quarter: 2022Q3

REPORT INFORMATION
  Report Type: Report from Study
  Country: EG (occurrence: EG)
  Receive Date: 20220825
  Receipt Date: 20220825
  Transmission Date: 20221026
  Serious: Yes (Other)
  Sender: FDA-Public Use
  Company Number: EG-NOVARTISPH-NVSC2022EG189549

PATIENT
  Age: 58 Year
  Sex: Male

DRUGS (13)
  1. ENTRESTO [Suspect]
     Active Substance: SACUBITRIL\VALSARTAN
     Indication: Product used for unknown indication
     Dosage: 1 DOSAGE FORM, BID (24/26 MG)
     Route: 048
     Dates: start: 202201
  2. ENTRESTO [Suspect]
     Active Substance: SACUBITRIL\VALSARTAN
     Dosage: 1 DOSAGE FORM, BID (49/51 MG)
     Route: 048
  3. ENTRESTO [Suspect]
     Active Substance: SACUBITRIL\VALSARTAN
     Dosage: 1 DOSAGE FORM, BID (97/103 MG)
     Route: 048
  4. LEVETIRACETAM [Concomitant]
     Active Substance: LEVETIRACETAM
     Indication: Cerebral disorder
     Dosage: 1 DOSAGE FORM, BID
     Route: 048
     Dates: start: 202201
  5. LEVETIRACETAM [Concomitant]
     Active Substance: LEVETIRACETAM
     Indication: Nerve injury
  6. ATORVASTATIN CALCIUM [Concomitant]
     Active Substance: ATORVASTATIN CALCIUM
     Indication: Cardiac failure
     Dosage: 1 DOSAGE FORM, QD
     Route: 048
     Dates: start: 202201
  7. BISOPROLOL FUMARATE [Concomitant]
     Active Substance: BISOPROLOL FUMARATE
     Indication: Hypertension
     Dosage: 1 DOSAGE FORM, QD
     Route: 048
     Dates: start: 202201
  8. TIZANIDINE [Concomitant]
     Active Substance: TIZANIDINE
     Indication: Nerve injury
     Dosage: 1 DOSAGE FORM, BID
     Route: 048
     Dates: start: 202201
  9. BEPRA [Concomitant]
     Indication: Prophylaxis against gastrointestinal ulcer
     Dosage: 1 DOSAGE FORM, QD
     Route: 048
     Dates: start: 202201
  10. GAPTIN [Concomitant]
     Indication: Cerebral disorder
     Dosage: 1 DOSAGE FORM, BID
     Route: 048
     Dates: start: 202201
  11. GAPTIN [Concomitant]
     Indication: Nerve injury
  12. CYMBATEX [Concomitant]
     Indication: Cerebral disorder
     Dosage: 1 DOSAGE FORM, QD
     Route: 048
     Dates: start: 202201
  13. TAMSULOSIN HYDROCHLORIDE [Concomitant]
     Active Substance: TAMSULOSIN HYDROCHLORIDE
     Indication: Urinary retention
     Dosage: 1 DOSAGE FORM, QD (STARTED A MONTH AGO)
     Route: 048

REACTIONS (6)
  - Hyperthyroidism [Not Recovered/Not Resolved]
  - Urinary retention [Recovering/Resolving]
  - Renal impairment [Not Recovered/Not Resolved]
  - Tooth disorder [Not Recovered/Not Resolved]
  - Dizziness [Not Recovered/Not Resolved]
  - Hypotension [Not Recovered/Not Resolved]

NARRATIVE: CASE EVENT DATE: 20220501
